FAERS Safety Report 7301481-6 (Version None)
Quarter: 2011Q1

REPORT INFORMATION
  Report Type: 
  Country: None (occurrence: None)
  Receive Date: 20110218
  Receipt Date: 20100302
  Transmission Date: 20110831
  Serious: No
  Sender: FDA-Public Use
  Company Number: US-BRISTOL-MYERS SQUIBB COMPANY-14998777

PATIENT
  Age: 74 Year
  Sex: Male
  Weight: 68 kg

DRUGS (2)
  1. ASPIRIN [Concomitant]
  2. KENALOG [Suspect]
     Indication: TENDONITIS
     Dosage: DURATION:2 YEARS AGO

REACTIONS (3)
  - ECCHYMOSIS [None]
  - HAEMORRHAGE [None]
  - IMPAIRED HEALING [None]
